FAERS Safety Report 12562272 (Version 1)
Quarter: 2016Q3

REPORT INFORMATION
  Report Type: Spontaneous
  Country: US (occurrence: US)
  Receive Date: 20160715
  Receipt Date: 20160715
  Transmission Date: 20161109
  Serious: Yes (Hospitalization, Other)
  Sender: FDA-Public Use
  Company Number: US-TEVA-676962USA

PATIENT
  Age: 24 Year
  Sex: Male

DRUGS (3)
  1. LITHIUM. [Concomitant]
     Active Substance: LITHIUM
  2. OXCARBAZEPINE. [Concomitant]
     Active Substance: OXCARBAZEPINE
  3. QUETIAPINE FUMARATE. [Suspect]
     Active Substance: QUETIAPINE FUMARATE
     Indication: PARANOIA
     Route: 065

REACTIONS (7)
  - Microangiopathic haemolytic anaemia [Recovering/Resolving]
  - Respiratory rate increased [Recovering/Resolving]
  - Myalgia [Recovering/Resolving]
  - Thrombocytopenic purpura [Recovering/Resolving]
  - Pyrexia [Recovering/Resolving]
  - Mental disorder [Recovering/Resolving]
  - Renal failure [Recovering/Resolving]
